FAERS Safety Report 17750844 (Version 1)
Quarter: 2020Q2

REPORT INFORMATION
  Report Type: Spontaneous
  Country: IN (occurrence: IN)
  Receive Date: 20200506
  Receipt Date: 20200506
  Transmission Date: 20200714
  Serious: Yes (Life-Threatening, Other)
  Sender: FDA-Public Use
  Company Number: IN-TORRENT-00002514

PATIENT
  Age: 30 Year
  Sex: Female

DRUGS (1)
  1. CARBAMAZEPINE. [Suspect]
     Active Substance: CARBAMAZEPINE
     Indication: SEIZURE
     Route: 048

REACTIONS (10)
  - Conjunctival oedema [Recovering/Resolving]
  - Hepatic function abnormal [Unknown]
  - Eyelid oedema [Recovering/Resolving]
  - Hepatomegaly [Unknown]
  - Corneal oedema [Recovering/Resolving]
  - Visual acuity reduced [Recovered/Resolved]
  - Angle closure glaucoma [Recovering/Resolving]
  - Choroidal effusion [Recovering/Resolving]
  - Drug reaction with eosinophilia and systemic symptoms [Recovering/Resolving]
  - Iris atrophy [Unknown]
